FAERS Safety Report 12853196 (Version 1)
Quarter: 2016Q4

REPORT INFORMATION
  Report Type: Spontaneous
  Country: US (occurrence: US)
  Receive Date: 20161017
  Receipt Date: 20161017
  Transmission Date: 20170207
  Serious: Yes (Other)
  Sender: FDA-Public Use
  Company Number: US-PFIZER INC-2016027435

PATIENT
  Age: 26 Year
  Sex: Female

DRUGS (4)
  1. EPINEPHRINE. [Concomitant]
     Active Substance: EPINEPHRINE
     Indication: ANAESTHESIA
     Dosage: UNK
     Route: 008
  2. BICARBONATE [Concomitant]
     Active Substance: BICARBONATE ION
     Indication: ANAESTHESIA
     Dosage: UNK
     Route: 008
  3. LIDOCAINE HCL [Suspect]
     Active Substance: LIDOCAINE HYDROCHLORIDE
     Indication: ANAESTHESIA
     Dosage: 2 %, UNK
     Route: 008
  4. CHLOROPROCAINE [Suspect]
     Active Substance: CHLOROPROCAINE
     Indication: ANAESTHESIA
     Dosage: 3 %, UNK
     Route: 008

REACTIONS (1)
  - Toxicity to various agents [Unknown]
